FAERS Safety Report 5341840-4 (Version None)
Quarter: 2007Q2

REPORT INFORMATION
  Report Type: 
  Country: None (occurrence: None)
  Receive Date: 20070601
  Receipt Date: 20070525
  Transmission Date: 20071010
  Serious: Yes (Hospitalization)
  Sender: FDA-Public Use
  Company Number: US-ELI_LILLY_AND_COMPANY-US200705006665

PATIENT
  Age: 69 Year
  Sex: Female

DRUGS (10)
  1. BYETTA [Suspect]
     Indication: DIABETES MELLITUS NON-INSULIN-DEPENDENT
     Dosage: 5 UG, 2/D
     Route: 058
     Dates: start: 20070101, end: 20070101
  2. BYETTA [Suspect]
     Dosage: 10 UG, 2/D
     Route: 058
     Dates: start: 20070101, end: 20070101
  3. BYETTA [Suspect]
     Dosage: 5 UG, 2/D
     Route: 058
     Dates: start: 20070101, end: 20070101
  4. AMARYL [Concomitant]
     Dosage: 8 MG, DAILY (1/D)
     Route: 048
     Dates: end: 20070101
  5. AMARYL [Concomitant]
     Dosage: 4 MG, DAILY (1/D)
     Route: 048
     Dates: start: 20070101, end: 20070101
  6. AMARYL [Concomitant]
     Dosage: 2 MG, DAILY (1/D)
     Route: 048
     Dates: start: 20070101
  7. LANTUS [Concomitant]
     Indication: DIABETES MELLITUS
     Dosage: 15 U, 2/D
     Route: 058
     Dates: end: 20070101
  8. LANTUS [Concomitant]
     Dosage: 25 U, 2/D
     Route: 058
     Dates: start: 20070101
  9. CARDIZEM [Concomitant]
     Indication: BLOOD PRESSURE
     Dosage: 240 MG, DAILY (1/D)
     Route: 048
  10. THYROID TAB [Concomitant]
     Dosage: UNK, UNKNOWN
     Dates: start: 19690101

REACTIONS (9)
  - ASTHENIA [None]
  - BLOOD GLUCOSE DECREASED [None]
  - BLOOD PRESSURE INCREASED [None]
  - ERYTHEMA [None]
  - FEELING ABNORMAL [None]
  - PARAESTHESIA [None]
  - PRESYNCOPE [None]
  - TACHYCARDIA [None]
  - TREMOR [None]
